FAERS Safety Report 6256356-0 (Version None)
Quarter: 2009Q3

REPORT INFORMATION
  Report Type: 
  Country: None (occurrence: None)
  Receive Date: 20090706
  Receipt Date: 20090629
  Transmission Date: 20100115
  Serious: Yes (Hospitalization, Other)
  Sender: FDA-Public Use
  Company Number: US-ROCHE-640635

PATIENT
  Age: 27 Year
  Sex: Male

DRUGS (11)
  1. MYCOPHENOLATE MOFETIL [Suspect]
     Route: 065
  2. MYCOPHENOLATE MOFETIL [Suspect]
     Dosage: RESTARTED
     Route: 065
  3. RITUXIMAB [Suspect]
     Route: 065
  4. RITUXIMAB [Suspect]
     Route: 065
  5. GANCICLOVIR [Suspect]
     Indication: ANTIVIRAL TREATMENT
     Route: 065
  6. ANTITHYMOCYTE GLOBULIN [Suspect]
     Route: 065
  7. TACROLIMUS [Suspect]
     Dosage: TROUGH LEVELS 8-12 NG/ML
     Route: 065
  8. TACROLIMUS [Suspect]
     Dosage: STEROID TAPER
     Route: 065
  9. TACROLIMUS [Suspect]
     Dosage: BOLUSED STEROID
     Route: 065
  10. TACROLIMUS [Suspect]
     Dosage: TROUGH LEVELS LOWERED TO LESS THAN 6 NG/ML
     Route: 065
  11. CIPROFLAXACIN [Suspect]
     Indication: URINARY TRACT INFECTION
     Route: 065

REACTIONS (8)
  - ADENOVIRUS INFECTION [None]
  - CYSTITIS GLANDULARIS [None]
  - HAEMATURIA [None]
  - HERPES ZOSTER [None]
  - HYPOGAMMAGLOBULINAEMIA [None]
  - RENAL CYST [None]
  - TRANSPLANT REJECTION [None]
  - URINARY TRACT INFECTION [None]
